FAERS Safety Report 9759516 (Version 1)
Quarter: 2013Q4

REPORT INFORMATION
  Report Type: Spontaneous
  Country: BR (occurrence: BR)
  Receive Date: 20131216
  Receipt Date: 20131216
  Transmission Date: 20140711
  Serious: Yes (Other)
  Sender: FDA-Public Use
  Company Number: BR-SA-2013SA126835

PATIENT
  Sex: Female

DRUGS (6)
  1. LANTUS [Suspect]
     Indication: DIABETES MELLITUS
     Route: 058
     Dates: start: 2003
  2. APIDRA [Suspect]
     Indication: DIABETES MELLITUS
     Route: 058
     Dates: start: 2003
  3. PANTOPRAZOLE [Concomitant]
     Indication: PROPHYLAXIS
     Dosage: DOSE:1 UNIT(S)
     Route: 048
  4. MICARDIS [Concomitant]
     Indication: HYPERTENSION
     Dosage: DOSE:2 UNIT(S)
     Route: 048
  5. TRAYENTA [Concomitant]
     Dosage: DOSE:1 UNIT(S)
  6. PROLOPA [Concomitant]
     Indication: PARKINSON^S DISEASE
     Dosage: DOSE:3 UNIT(S)
     Route: 048

REACTIONS (5)
  - Femur fracture [Recovering/Resolving]
  - Urinary tract infection [Unknown]
  - Fall [Unknown]
  - Limb asymmetry [Recovering/Resolving]
  - Injection site discolouration [Recovering/Resolving]
